FAERS Safety Report 7107396-0 (Version None)
Quarter: 2010Q4

REPORT INFORMATION
  Report Type: 
  Country: None (occurrence: None)
  Receive Date: 20101111
  Receipt Date: 20101111
  Transmission Date: 20110411
  Serious: Yes (Hospitalization)
  Sender: FDA-Public Use
  Company Number: None

PATIENT
  Age: 17 Year
  Sex: Female
  Weight: 81.6475 kg

DRUGS (3)
  1. MINOCYCLINE [Suspect]
     Indication: ACNE
     Dates: start: 20061115, end: 20070801
  2. MINOCYCLINE XR [Suspect]
     Indication: ACNE
     Dates: start: 20070801, end: 20071015
  3. ACCUTANE [Suspect]
     Indication: ACNE
     Dates: start: 20071101, end: 20071106

REACTIONS (3)
  - PERICARDIAL EFFUSION [None]
  - PERICARDITIS [None]
  - PLEURAL EFFUSION [None]
